FAERS Safety Report 7960124-9 (Version None)
Quarter: 2011Q4

REPORT INFORMATION
  Report Type: 
  Country: None (occurrence: None)
  Receive Date: 20111206
  Receipt Date: 20111130
  Transmission Date: 20120403
  Serious: Yes (Other)
  Sender: FDA-Public Use
  Company Number: PHEH2009US07547

PATIENT
  Sex: Female

DRUGS (7)
  1. FOSAMAX [Suspect]
  2. ARIMIDEX [Concomitant]
     Dosage: 1 MG, QD
  3. TRIAMTERENE [Concomitant]
  4. CHEMOTHERAPEUTICS NOS [Concomitant]
  5. ZOMETA [Suspect]
     Indication: BONE LESION
     Dosage: UKN, QMO
  6. DYAZIDE [Concomitant]
     Dosage: 25 MG, UNK
  7. BACITRACIN [Concomitant]

REACTIONS (18)
  - BREAST CANCER [None]
  - ANAEMIA [None]
  - GRANULOMA [None]
  - GINGIVAL PAIN [None]
  - ERYTHEMA [None]
  - GENERAL PHYSICAL HEALTH DETERIORATION [None]
  - ANXIETY [None]
  - HYPERTENSION [None]
  - OSTEONECROSIS OF JAW [None]
  - PERIODONTITIS [None]
  - DYSGEUSIA [None]
  - GINGIVAL INFECTION [None]
  - IMPAIRED HEALING [None]
  - NECROSIS [None]
  - PAIN [None]
  - DECREASED INTEREST [None]
  - DEVICE BREAKAGE [None]
  - OSTEOPOROSIS [None]
